FAERS Safety Report 7462785-X (Version None)
Quarter: 2011Q2

REPORT INFORMATION
  Report Type: 
  Country: None (occurrence: None)
  Receive Date: 20110506
  Receipt Date: 20110503
  Transmission Date: 20111010
  Serious: Yes (Congenital Anomaly)
  Sender: FDA-Public Use
  Company Number: SE-PFIZER INC-2010108159

PATIENT
  Sex: Male

DRUGS (1)
  1. VARENICLINE TARTRATE [Suspect]
     Indication: SMOKING CESSATION THERAPY
     Dosage: 1 MG, 2X/DAY
     Route: 064
     Dates: end: 20100614

REACTIONS (2)
  - DRUG EXPOSURE DURING PREGNANCY [None]
  - ANKYLOGLOSSIA CONGENITAL [None]
